FAERS Safety Report 5047249-5 (Version None)
Quarter: 2006Q3

REPORT INFORMATION
  Report Type: 
  Country: None (occurrence: None)
  Receive Date: 20060703
  Receipt Date: 20060621
  Transmission Date: 20061208
  Serious: Yes (Life-Threatening, Hospitalization, Other)
  Sender: FDA-Public Use
  Company Number: DE-2006-013213

PATIENT
  Age: 42 Year
  Sex: Male

DRUGS (2)
  1. BETASERON [Suspect]
     Indication: RELAPSING-REMITTING MULTIPLE SCLEROSIS
     Dosage: EVERY 2D, SUBCUTANEOUS
     Route: 058
     Dates: start: 20000101
  2. ACETYLSALICYLIC ACID SRT [Concomitant]

REACTIONS (3)
  - CEREBRAL HAEMORRHAGE [None]
  - HAEMORRHAGIC STROKE [None]
  - SUBDURAL HAEMATOMA [None]
